FAERS Safety Report 14285209 (Version 21)
Quarter: 2018Q3

REPORT INFORMATION
  Report Type: Report from Study
  Country: DE (occurrence: DE)
  Receive Date: 20171214
  Receipt Date: 20180818
  Transmission Date: 20181010
  Serious: Yes (Hospitalization, Other)
  Sender: FDA-Public Use
  Company Number: DE-CONCORDIA PHARMACEUTICALS INC.-E2B_00008807

PATIENT
  Age: 58 Year
  Sex: Female
  Weight: 55 kg

DRUGS (18)
  1. SIMVASTATIN. [Concomitant]
     Active Substance: SIMVASTATIN
     Indication: HYPERCHOLESTEROLAEMIA
     Dosage: DOSAGE FORM: UNSPECIFIED, CUMULATIVE DOSE 300 MG
     Route: 048
     Dates: start: 20171010
  2. CYCLOPHOSPHAMIDE. [Suspect]
     Active Substance: CYCLOPHOSPHAMIDE
     Indication: B-CELL LYMPHOMA
     Dosage: 1400 MG, QD (CUMULATIVE DOSE TO FIRST REACTION 1400 MG)
     Route: 042
     Dates: start: 20171012, end: 20171012
  3. ASPIRIN. [Concomitant]
     Active Substance: ASPIRIN
     Indication: PROPHYLAXIS
     Dosage: CUMULATIVE DOSE TO FIRST REACTION WAS 1500 MG
     Route: 048
     Dates: start: 20171010
  4. ZOPICLON [Concomitant]
     Active Substance: ZOPICLONE
     Indication: SLEEP DISORDER THERAPY
     Dosage: DAILY DOSE: 7.5 MG MILLIGRAM(S) EVERY DAY
     Route: 048
     Dates: start: 20171010
  5. AFINITOR [Suspect]
     Active Substance: EVEROLIMUS
     Dosage: 10 MG, QD
     Route: 048
     Dates: start: 20160901, end: 20170126
  6. TAMSULOSIN [Concomitant]
     Active Substance: TAMSULOSIN
     Indication: BENIGN PROSTATIC HYPERPLASIA
     Dosage: 4 MG, QD
     Route: 048
     Dates: start: 20171010
  7. PREDNISOLONE. [Concomitant]
     Active Substance: PREDNISOLONE
     Indication: PRODUCT USED FOR UNKNOWN INDICATION
     Dosage: 20 MG, QD (CUMULATIVE DOSE 480MG)
     Route: 065
     Dates: start: 20170213
  8. PEGFILGRASTIM [Suspect]
     Active Substance: PEGFILGRASTIM
     Indication: B-CELL LYMPHOMA
     Dosage: 6 MG, QD
     Route: 058
     Dates: start: 20171015, end: 20171015
  9. DOXORUBICIN [Suspect]
     Active Substance: DOXORUBICIN
     Indication: B-CELL LYMPHOMA
     Dosage: 95 MG, QD (CUMULATIVE DOSE TO FIRST REACTION 95 MG)
     Route: 042
     Dates: start: 20171012, end: 20171012
  10. EXEMESTANE. [Suspect]
     Active Substance: EXEMESTANE
     Indication: BREAST CANCER METASTATIC
     Dosage: 25 MG, QD
     Route: 048
     Dates: start: 20160523, end: 20170126
  11. PREDNISOLONE. [Suspect]
     Active Substance: PREDNISOLONE
     Dosage: 500 MG, QD
     Route: 048
     Dates: start: 20171012, end: 20171012
  12. VINCRISTINE [Suspect]
     Active Substance: VINCRISTINE
     Indication: B-CELL LYMPHOMA
     Dosage: 3.12 MG, QD
     Route: 042
     Dates: start: 20171012, end: 20171012
  13. PREDNISOLONE. [Suspect]
     Active Substance: PREDNISOLONE
     Indication: B-CELL LYMPHOMA
     Dosage: 20 MG, QD
     Route: 048
     Dates: start: 20171113
  14. MABTHERA [Suspect]
     Active Substance: RITUXIMAB
     Indication: B-CELL LYMPHOMA
     Dosage: 15400 MG, UNK
     Route: 042
  15. MABTHERA [Suspect]
     Active Substance: RITUXIMAB
     Dosage: 700 MG, QD
     Route: 042
     Dates: start: 20171011, end: 20171011
  16. AFINITOR [Suspect]
     Active Substance: EVEROLIMUS
     Indication: BREAST CANCER METASTATIC
     Dosage: (CUMULATIVE DOSE 780MG)10 MG, QD
     Route: 048
     Dates: start: 20160523, end: 20160808
  17. PEGFILGRASTIM [Suspect]
     Active Substance: PEGFILGRASTIM
     Indication: B-CELL LYMPHOMA
     Dosage: 6 MG, QD
     Route: 058
     Dates: start: 20171012, end: 20171012
  18. ACETYLSALICYLSAEURE [Concomitant]
     Active Substance: ASPIRIN
     Dosage: DAILY DOSE: 100 MG MILLIGRAM(S) EVERY DAY
     Dates: start: 20171010

REACTIONS (6)
  - Pneumonitis [Not Recovered/Not Resolved]
  - Off label use [Unknown]
  - Dyspnoea [Not Recovered/Not Resolved]
  - Pneumonia [Recovered/Resolved]
  - Product use in unapproved indication [Unknown]
  - Product use in unapproved indication [Unknown]

NARRATIVE: CASE EVENT DATE: 20170126
